FAERS Safety Report 7062382-4 (Version None)
Quarter: 2010Q4

REPORT INFORMATION
  Report Type: 
  Country: None (occurrence: None)
  Receive Date: 20101026
  Receipt Date: 20101022
  Transmission Date: 20110411
  Serious: Yes (Hospitalization, Other)
  Sender: FDA-Public Use
  Company Number: FR-WYE-G06846210

PATIENT
  Age: 70 Year
  Sex: Male

DRUGS (1)
  1. TORISEL [Suspect]
     Dosage: UNKNOWN
     Route: 042

REACTIONS (4)
  - CHOLECYSTITIS ACUTE [None]
  - FALL [None]
  - SILENT MYOCARDIAL INFARCTION [None]
  - THROMBOCYTOPENIA [None]
